FAERS Safety Report 5340958-X (Version None)
Quarter: 2007Q2

REPORT INFORMATION
  Report Type: 
  Country: None (occurrence: None)
  Receive Date: 20070405
  Receipt Date: 20070131
  Transmission Date: 20071010
  Serious: No
  Sender: FDA-Public Use
  Company Number: US200701004401

PATIENT
  Age: 51 Year
  Sex: Male

DRUGS (5)
  1. CYMBALTA [Suspect]
     Indication: PAIN
     Dosage: 20 MG, DAILY (1/D); 40 MG, DAILY (1/D), 60 MG, 30 MG
     Dates: start: 20061001, end: 20061201
  2. CYMBALTA [Suspect]
     Indication: PAIN
     Dosage: 20 MG, DAILY (1/D); 40 MG, DAILY (1/D), 60 MG, 30 MG
     Dates: start: 20061201, end: 20070112
  3. ELAVIL [Concomitant]
  4. NEURONTIN [Concomitant]
  5. PERCOCET [Concomitant]

REACTIONS (7)
  - APATHY [None]
  - DISTURBANCE IN ATTENTION [None]
  - LOSS OF LIBIDO [None]
  - NAUSEA [None]
  - PARAESTHESIA [None]
  - SLEEP DISORDER [None]
  - TINNITUS [None]
